FAERS Safety Report 6872037-4 (Version None)
Quarter: 2010Q3

REPORT INFORMATION
  Report Type: 
  Country: None (occurrence: None)
  Receive Date: 20100723
  Receipt Date: 20100712
  Transmission Date: 20110219
  Serious: Yes (Hospitalization, Other)
  Sender: FDA-Public Use
  Company Number: CA-PFIZER INC-2010086637

PATIENT
  Age: 40 Year
  Sex: Female

DRUGS (1)
  1. CHAMPIX [Suspect]
     Dosage: UNK
     Dates: start: 20100122, end: 20100408

REACTIONS (6)
  - ANXIETY [None]
  - MANIA [None]
  - MENTAL DISORDER [None]
  - OVERDOSE [None]
  - PSYCHOTIC DISORDER [None]
  - SELF-INJURIOUS IDEATION [None]
